FAERS Safety Report 6617705-4 (Version None)
Quarter: 2010Q1

REPORT INFORMATION
  Report Type: 
  Country: None (occurrence: None)
  Receive Date: 20100308
  Receipt Date: 20100222
  Transmission Date: 20100710
  Serious: Yes (Other)
  Sender: FDA-Public Use
  Company Number: PHHY2010US11815

PATIENT
  Sex: Female

DRUGS (8)
  1. RECLAST [Suspect]
     Indication: OSTEOPOROSIS
     Dosage: UNK
     Route: 042
     Dates: start: 20080901
  2. THYROID THERAPY [Concomitant]
     Dosage: UNK
  3. ANTIHYPERTENSIVES [Concomitant]
     Indication: HYPERTENSION
     Dosage: UNK
  4. NORVASC [Concomitant]
     Indication: HYPERTENSION
     Dosage: UNK
  5. COUMADIN [Concomitant]
     Indication: PULMONARY THROMBOSIS
     Dosage: UNK
  6. PAXIL [Concomitant]
     Indication: DEPRESSION
     Dosage: UNK
  7. CALCIUM [Concomitant]
     Dosage: UNK
  8. VITAMIN D [Concomitant]
     Dosage: UNK

REACTIONS (5)
  - ERYTHEMA [None]
  - FLUID RETENTION [None]
  - FOOT FRACTURE [None]
  - PAIN IN EXTREMITY [None]
  - SKIN DISCOLOURATION [None]
